FAERS Safety Report 16779723 (Version 1)
Quarter: 2019Q3

REPORT INFORMATION
  Report Type: Spontaneous
  Country: US (occurrence: US)
  Receive Date: 20190906
  Receipt Date: 20190906
  Transmission Date: 20191005
  Serious: No
  Sender: FDA-Public Use
  Company Number: US-TEVA-2019-US-1103250

PATIENT
  Sex: Female

DRUGS (1)
  1. AJOVY [Suspect]
     Active Substance: FREMANEZUMAB-VFRM
     Dosage: HAS BEEN TAKING AJOVY FOR MORE THAN 3 MONTHS
     Route: 065
     Dates: start: 2019

REACTIONS (1)
  - Contusion [Unknown]
